FAERS Safety Report 23361527 (Version 1)
Quarter: 2024Q1

REPORT INFORMATION
  Report Type: Report from Study
  Country: CL (occurrence: CL)
  Receive Date: 20240103
  Receipt Date: 20240103
  Transmission Date: 20240410
  Serious: Yes (Other)
  Sender: FDA-Public Use
  Company Number: CL-JNJFOC-20231277726

PATIENT
  Age: 39 Year
  Sex: Female

DRUGS (1)
  1. SIMPONI [Suspect]
     Active Substance: GOLIMUMAB
     Indication: Rheumatoid arthritis
     Dosage: LAST ADHERENCE 17-NOV-2023.
     Route: 058
     Dates: start: 20210406

REACTIONS (6)
  - Pneumonia [Unknown]
  - Bronchitis [Unknown]
  - Pharyngitis [Recovered/Resolved]
  - Nasopharyngitis [Unknown]
  - Ear infection [Recovered/Resolved]
  - Tonsillitis [Unknown]
